FAERS Safety Report 8806274 (Version 2)
Quarter: 2013Q1

REPORT INFORMATION
  Report Type: Spontaneous
  Country: JP (occurrence: None)
  Receive Date: 20120919
  Receipt Date: 20121015
  Transmission Date: 20140127
  Serious: Yes (Hospitalization)
  Sender: FDA-Public Use
  Company Number: JP-CLINIGEN HEALTHCARE LIMITED-003000

PATIENT
  Age: 59 Year
  Sex: Male

DRUGS (2)
  1. FOSCAVIR [Suspect]
     Indication: CYTOMEGALOVIRUS ENTEROCOLITIS
     Route: 041
     Dates: start: 20120811, end: 20120813
  2. DENOSINE [Suspect]
     Route: 041
     Dates: start: 20120802, end: 20120807

REACTIONS (1)
  - Pancytopenia [None]
